FAERS Safety Report 10012192 (Version 1)
Quarter: 2014Q1

REPORT INFORMATION
  Report Type: Spontaneous
  Country: TN (occurrence: TN)
  Receive Date: 20140314
  Receipt Date: 20140314
  Transmission Date: 20141002
  Serious: Yes (Other)
  Sender: FDA-Public Use
  Company Number: TN-GLAXOSMITHKLINE-B0976826A

PATIENT
  Age: 45 Year
  Sex: Female

DRUGS (2)
  1. LAMICTAL [Suspect]
     Indication: DEPRESSION
     Dosage: 200MG PER DAY
     Route: 065
     Dates: start: 201310
  2. DEROXAT [Concomitant]
     Indication: DEPRESSION
     Dates: start: 201310

REACTIONS (15)
  - Genital haemorrhage [Not Recovered/Not Resolved]
  - Influenza like illness [Recovered/Resolved]
  - Abdominal distension [Not Recovered/Not Resolved]
  - Vitamin B12 deficiency [Not Recovered/Not Resolved]
  - Weight increased [Not Recovered/Not Resolved]
  - Dry mouth [Not Recovered/Not Resolved]
  - Eye irritation [Not Recovered/Not Resolved]
  - Dyspnoea [Unknown]
  - Thermal burn [Unknown]
  - Odynophagia [Unknown]
  - Dry mouth [Unknown]
  - Local swelling [Unknown]
  - Swelling [Unknown]
  - Thrombosis [Unknown]
  - Oropharyngeal pain [Unknown]
